FAERS Safety Report 5866600-7 (Version None)
Quarter: 2008Q3

REPORT INFORMATION
  Report Type: 
  Country: None (occurrence: None)
  Receive Date: 20080829
  Receipt Date: 20080829
  Transmission Date: 20090109
  Serious: No
  Sender: FDA-Public Use
  Company Number: None

PATIENT
  Sex: Female

DRUGS (1)
  1. KLONOPIN [Suspect]
     Indication: ANXIETY
     Dosage: 0.5 MG 3X/DAY ORAL TAKEN FOR 2-3 WKS YEARS AGO
     Route: 048

REACTIONS (1)
  - DRUG INEFFECTIVE [None]
